FAERS Safety Report 22240660 (Version 1)
Quarter: 2023Q2

REPORT INFORMATION
  Report Type: Spontaneous
  Country: US (occurrence: None)
  Receive Date: 20230421
  Receipt Date: 20230421
  Transmission Date: 20230721
  Serious: Yes (Other)
  Sender: FDA-Public Use
  Company Number: US-ROCHE-3236659

PATIENT

DRUGS (1)
  1. OCREVUS [Suspect]
     Active Substance: OCRELIZUMAB
     Indication: Multiple sclerosis
     Route: 065

REACTIONS (6)
  - Blindness unilateral [Unknown]
  - Balance disorder [Unknown]
  - Lethargy [Unknown]
  - Head discomfort [Unknown]
  - Panic attack [Unknown]
  - Memory impairment [Unknown]
